FAERS Safety Report 6421956-1 (Version None)
Quarter: 2009Q4

REPORT INFORMATION
  Report Type: 
  Country: None (occurrence: None)
  Receive Date: 20091030
  Receipt Date: 20091023
  Transmission Date: 20100525
  Serious: Yes (Other)
  Sender: FDA-Public Use
  Company Number: CHPA2009US20912

PATIENT
  Sex: Female
  Weight: 69.841 kg

DRUGS (11)
  1. VOLTAREN [Suspect]
     Indication: OEDEMA PERIPHERAL
     Dosage: 4 MG, ONCE/SINGLE
     Route: 061
     Dates: start: 20091021, end: 20091021
  2. NOVOLOG [Concomitant]
     Indication: TYPE 1 DIABETES MELLITUS
     Dosage: UNK, SLIDING SCALE BASED ON BLOOD SUGARS
     Dates: start: 19690101
  3. HUMULIN N [Concomitant]
     Indication: TYPE 1 DIABETES MELLITUS
     Dosage: UNK, 35-45 UNITS EACH DAY
     Dates: start: 19690101
  4. LYRICA [Concomitant]
     Indication: FIBROMYALGIA
     Dosage: 50 MG, QID
     Route: 048
     Dates: start: 20080101
  5. AMITIZA [Concomitant]
     Indication: DIABETIC GASTROPARESIS
     Dosage: 24 MG, BID
     Route: 048
     Dates: start: 19920101
  6. AMBIEN [Concomitant]
     Indication: INSOMNIA
     Dosage: 10 MG, QHS
     Route: 048
     Dates: start: 20040101
  7. PLAVIX [Concomitant]
     Indication: PROPHYLAXIS
     Dosage: 75 MG, QD
     Route: 048
     Dates: start: 20040101
  8. NASONEX [Concomitant]
     Indication: HYPERSENSITIVITY
     Dosage: UNK, NASAL SPRAY USED PRN
     Route: 045
     Dates: start: 20080101
  9. NASONEX [Concomitant]
     Indication: SEASONAL ALLERGY
  10. CYMBALTA [Concomitant]
     Indication: DEPRESSION
     Dosage: 60 MG, QD
     Route: 048
     Dates: start: 20070101
  11. LISINOPRIL [Concomitant]
     Indication: HYPERTENSION
     Dosage: 20 MG, QD
     Route: 048
     Dates: start: 20070101

REACTIONS (9)
  - BLOOD PRESSURE INCREASED [None]
  - DISORIENTATION [None]
  - DYSGEUSIA [None]
  - DYSPHAGIA [None]
  - FEELING ABNORMAL [None]
  - HYPERSENSITIVITY [None]
  - RASH ERYTHEMATOUS [None]
  - RASH PRURITIC [None]
  - THROAT TIGHTNESS [None]
